FAERS Safety Report 12071519 (Version 2)
Quarter: 2016Q1

REPORT INFORMATION
  Report Type: Spontaneous
  Country: FR (occurrence: FR)
  Receive Date: 20160211
  Receipt Date: 20160329
  Transmission Date: 20160526
  Serious: Yes (Other)
  Sender: FDA-Public Use
  Company Number: FR-AMGEN-FRASP2016015905

PATIENT
  Age: 80 Year
  Sex: Female

DRUGS (2)
  1. ENBREL [Suspect]
     Active Substance: ETANERCEPT
     Indication: RHEUMATOID ARTHRITIS
     Dosage: 50 MG, UNK
     Route: 065
  2. ENBREL [Suspect]
     Active Substance: ETANERCEPT
     Dosage: 50 MG, UNK
     Route: 065
     Dates: start: 2015

REACTIONS (11)
  - Throat tightness [Unknown]
  - Speech disorder [Unknown]
  - Oropharyngeal discomfort [Unknown]
  - Oropharyngeal pain [Unknown]
  - Increased upper airway secretion [Unknown]
  - Head titubation [Unknown]
  - Cough [Unknown]
  - Dysphonia [Unknown]
  - Drug ineffective [Not Recovered/Not Resolved]
  - Dyspnoea [Unknown]
  - Asphyxia [Unknown]

NARRATIVE: CASE EVENT DATE: 20160201
